FAERS Safety Report 4586657-3 (Version None)
Quarter: 2005Q1

REPORT INFORMATION
  Report Type: 
  Country: None (occurrence: None)
  Receive Date: 20050218
  Receipt Date: 20041007
  Transmission Date: 20050727
  Serious: Yes (Other)
  Sender: FDA-Public Use
  Company Number: US-BRISTOL-MYERS SQUIBB COMPANY-12725263

PATIENT
  Age: 54 Year
  Sex: Female
  Weight: 64 kg

DRUGS (6)
  1. TAXOL [Suspect]
     Indication: BREAST CANCER
     Route: 042
     Dates: start: 20040930, end: 20040930
  2. DECADRON [Concomitant]
     Indication: PREMEDICATION
     Route: 042
  3. BENADRYL [Concomitant]
     Indication: PREMEDICATION
     Route: 042
  4. PEPCID [Concomitant]
     Indication: PREMEDICATION
     Route: 042
  5. ALOXI [Concomitant]
     Indication: PREMEDICATION
     Route: 042
  6. ATIVAN [Concomitant]
     Indication: PREMEDICATION
     Route: 042

REACTIONS (1)
  - HYPERSENSITIVITY [None]
